FAERS Safety Report 4670302-2 (Version None)
Quarter: 2005Q2

REPORT INFORMATION
  Report Type: 
  Country: None (occurrence: None)
  Receive Date: 20050519
  Receipt Date: 20050311
  Transmission Date: 20051028
  Serious: No
  Sender: FDA-Public Use
  Company Number: SUS1-2005-00207

PATIENT
  Age: 9 Year
  Sex: Female

DRUGS (3)
  1. FOSRENOL [Suspect]
     Indication: HYPERPHOSPHATAEMIA
     Dosage: 500 MG, 3X/DAY:TID
     Dates: start: 20050208
  2. CALCITROL (RETINOL, ERGOCALCIFEROL) [Concomitant]
  3. CITALOPRAM (CITALOPRAM) [Concomitant]

REACTIONS (1)
  - TOOTH DISCOLOURATION [None]
